FAERS Safety Report 15588578 (Version 1)
Quarter: 2018Q4

REPORT INFORMATION
  Report Type: Spontaneous
  Country: ES (occurrence: ES)
  Receive Date: 20181105
  Receipt Date: 20181105
  Transmission Date: 20190205
  Serious: Yes (Hospitalization)
  Sender: FDA-Public Use
  Company Number: ES-SUN PHARMACEUTICAL INDUSTRIES LTD-2018RR-190140

PATIENT
  Age: 51 Year
  Sex: Female

DRUGS (7)
  1. ACICLOVIR (201A) [Concomitant]
     Active Substance: ACYCLOVIR
     Indication: PRODUCT USED FOR UNKNOWN INDICATION
     Dosage: 800MG/12H
     Route: 048
     Dates: start: 20180309
  2. IMATINIB. [Suspect]
     Active Substance: IMATINIB MESYLATE
     Indication: ACUTE LYMPHOCYTIC LEUKAEMIA
     Dosage: 600 MG DE
     Route: 048
     Dates: start: 20180309, end: 20180317
  3. AMLODIPINO (2503A) [Concomitant]
     Active Substance: AMLODIPINE BESYLATE
     Indication: PRODUCT USED FOR UNKNOWN INDICATION
     Dosage: 10 MG DIA
     Route: 048
     Dates: start: 20180309
  4. MICAFUNGINA (8263A) [Concomitant]
     Indication: PRODUCT USED FOR UNKNOWN INDICATION
     Dosage: 50 MG DIA
     Route: 065
     Dates: start: 20180309
  5. CITARABINA [Suspect]
     Active Substance: CYTARABINE
     Indication: ACUTE LYMPHOCYTIC LEUKAEMIA
     Dosage: 30 MG ; IN TOTAL
     Route: 042
     Dates: start: 20180312, end: 20180312
  6. SOLTRIM 160MG/ 800MG POLVO Y SOLUCION PARA SOLUCION INYECTABLE [Concomitant]
     Indication: PRODUCT USED FOR UNKNOWN INDICATION
     Dosage: 1 UNIDAD CADA 12 HORAS
     Route: 042
     Dates: start: 20180309
  7. LEVOTIROXINA (1842A) [Concomitant]
     Indication: POST PROCEDURAL HYPOTHYROIDISM
     Dosage: 75 MG DIA
     Route: 048
     Dates: start: 20100101

REACTIONS (1)
  - Inappropriate antidiuretic hormone secretion [Recovered/Resolved]

NARRATIVE: CASE EVENT DATE: 20180325
